FAERS Safety Report 4551145-7 (Version None)
Quarter: 2005Q1

REPORT INFORMATION
  Report Type: 
  Country: None (occurrence: None)
  Receive Date: 20050113
  Receipt Date: 20050104
  Transmission Date: 20050727
  Serious: Yes (Other)
  Sender: FDA-Public Use
  Company Number: NSADSS2002039932

PATIENT
  Sex: Female
  Weight: 95.26 kg

DRUGS (4)
  1. REMICADE [Suspect]
     Indication: CROHN'S DISEASE
     Route: 041
     Dates: start: 19990101
  2. ORTHO TRI-CYCLEN [Concomitant]
     Route: 049
  3. IMURAN [Concomitant]
     Dates: start: 20010718
  4. PENTASA [Concomitant]

REACTIONS (4)
  - BENIGN BREAST NEOPLASM [None]
  - HEADACHE [None]
  - THYROID GLAND CANCER [None]
  - VISUAL DISTURBANCE [None]
